FAERS Safety Report 5150489-8 (Version None)
Quarter: 2006Q4

REPORT INFORMATION
  Report Type: 
  Country: None (occurrence: None)
  Receive Date: 20061114
  Receipt Date: 20061102
  Transmission Date: 20070319
  Serious: Yes (Other)
  Sender: FDA-Public Use
  Company Number: US-GLAXOSMITHKLINE-A0626054A

PATIENT
  Age: 66 Year
  Sex: Male
  Weight: 92.3 kg

DRUGS (1)
  1. AVODART [Suspect]
     Indication: DRUG USE FOR UNKNOWN INDICATION
     Route: 065

REACTIONS (3)
  - BREAST ENLARGEMENT [None]
  - BREAST SWELLING [None]
  - NIPPLE PAIN [None]
